FAERS Safety Report 5744364-5 (Version None)
Quarter: 2008Q2

REPORT INFORMATION
  Report Type: 
  Country: None (occurrence: None)
  Receive Date: 20080516
  Receipt Date: 20080502
  Transmission Date: 20081010
  Serious: Yes (Hospitalization)
  Sender: FDA-Public Use
  Company Number: 2008AL003227

PATIENT
  Sex: Female

DRUGS (6)
  1. DIGOXIN                 (AMIDE) [Suspect]
     Indication: ATRIAL FIBRILLATION
     Dosage: 0.25MG DAILY PO
     Route: 048
  2. COUMADIN [Concomitant]
  3. LIPITOR [Concomitant]
  4. ATENOLOL [Concomitant]
  5. VITAMINS [Concomitant]
  6. LISINOPRIL [Concomitant]

REACTIONS (6)
  - DYSPNOEA [None]
  - KIDNEY INFECTION [None]
  - NAUSEA [None]
  - RENAL FAILURE [None]
  - THERAPEUTIC AGENT TOXICITY [None]
  - VOMITING [None]
